FAERS Safety Report 7730036-4 (Version None)
Quarter: 2011Q3

REPORT INFORMATION
  Report Type: 
  Country: None (occurrence: None)
  Receive Date: 20110906
  Receipt Date: 20110825
  Transmission Date: 20111222
  Serious: Yes (Hospitalization)
  Sender: FDA-Public Use
  Company Number: PHFR2011GB04699

PATIENT
  Sex: Female

DRUGS (2)
  1. CLOZAPINE [Suspect]
     Indication: SCHIZOPHRENIA
     Route: 048
     Dates: start: 20060809, end: 20110804
  2. ANTIBIOTICS [Concomitant]
     Route: 042

REACTIONS (6)
  - MALAISE [None]
  - BLOOD CREATINE PHOSPHOKINASE INCREASED [None]
  - CONTUSION [None]
  - BODY TEMPERATURE INCREASED [None]
  - NEUROLEPTIC MALIGNANT SYNDROME [None]
  - MENTAL IMPAIRMENT [None]
